FAERS Safety Report 7203132-8 (Version None)
Quarter: 2010Q4

REPORT INFORMATION
  Report Type: 
  Country: None (occurrence: None)
  Receive Date: 20101229
  Receipt Date: 20101227
  Transmission Date: 20110411
  Serious: Yes (Life-Threatening, Other)
  Sender: FDA-Public Use
  Company Number: CN-BAYER-2010-007942

PATIENT
  Age: 70 Year
  Sex: Male

DRUGS (2)
  1. ACARBOSE [Suspect]
     Indication: SUICIDE ATTEMPT
     Dosage: 2500 MG, ONCE
     Route: 048
     Dates: start: 20101201
  2. DIAZEPAM [Suspect]
     Indication: SUICIDE ATTEMPT
     Dosage: 10 DF, ONCE
     Route: 048
     Dates: start: 20101201

REACTIONS (1)
  - SUICIDE ATTEMPT [None]
